FAERS Safety Report 10666982 (Version 2)
Quarter: 2015Q2

REPORT INFORMATION
  Report Type: Report from Study
  Country: DE (occurrence: DE)
  Receive Date: 20141222
  Receipt Date: 20150414
  Transmission Date: 20150821
  Serious: Yes (Hospitalization)
  Sender: FDA-Public Use
  Company Number: DE-BIOGENIDEC-2014BI131411

PATIENT
  Age: 29 Year
  Sex: Female
  Weight: 57 kg

DRUGS (8)
  1. PANTOZOLE [Concomitant]
     Active Substance: PANTOPRAZOLE SODIUM
  2. FOLSAN [Concomitant]
     Active Substance: FOLIC ACID
  3. TECFIDERA [Suspect]
     Active Substance: DIMETHYL FUMARATE
     Indication: MULTIPLE SCLEROSIS
     Route: 048
     Dates: start: 20140526, end: 20140602
  4. TECFIDERA [Suspect]
     Active Substance: DIMETHYL FUMARATE
     Indication: MULTIPLE SCLEROSIS
     Route: 048
     Dates: start: 20140603
  5. AMANTADINE [Concomitant]
     Active Substance: AMANTADINE
     Indication: FATIGUE
     Route: 048
     Dates: start: 20150209
  6. LYRICA [Concomitant]
     Active Substance: PREGABALIN
     Indication: PAIN
     Route: 048
     Dates: start: 20140622
  7. CITALOPRAM [Concomitant]
     Active Substance: CITALOPRAM HYDROBROMIDE
     Indication: PROPHYLAXIS
     Dates: start: 20130601
  8. KALINOR RETARD [Concomitant]
     Active Substance: POTASSIUM CHLORIDE

REACTIONS (1)
  - Multiple sclerosis relapse [Recovered/Resolved]

NARRATIVE: CASE EVENT DATE: 20141105
